FAERS Safety Report 7233758 (Version 5)
Quarter: 2012Q4

REPORT INFORMATION
  Report Type: Report from Study
  Country: DE (occurrence: GB)
  Receive Date: 20091230
  Receipt Date: 20121216
  Transmission Date: 20130627
  Serious: Yes (Other)
  Sender: FDA-Public Use
  Company Number: GB-BRISTOL-MYERS SQUIBB COMPANY-14908974

PATIENT
  Age: 72 Year
  Sex: Female
  Weight: 64.2 kg

DRUGS (8)
  1. ERBITUX [Suspect]
     Indication: RECTAL CANCER
     Dosage: Last infusion :02Nov2009
     Route: 042
     Dates: start: 20090928, end: 20091102
  2. CAMPTO [Suspect]
     Indication: RECTAL CANCER
     Dosage: On UNK Date Dose changed to 76.5mg weekly until 2Nov09.
05Oct20090-Unk:102mg
Unk-02Nov2009:76.5mg
     Route: 042
     Dates: start: 20091005, end: 20091102
  3. CAPECITABINE [Suspect]
     Indication: RECTAL CANCER
     Dosage: Inf:6,1150 mg Last infusion on 13Nov2009
     Route: 048
     Dates: start: 20091005, end: 20091113
  4. SYMBICORT [Concomitant]
     Indication: ASTHMA
     Dosage: 1Df-200mcg:6mg
  5. CO-DYDRAMOL [Concomitant]
     Indication: ANALGESIC THERAPY
     Dosage: 1 -2 tabs daily.Ongoing
     Dates: start: 20090810
  6. LOSARTAN [Concomitant]
     Indication: HYPERTENSION
  7. ATORVASTATIN [Concomitant]
     Indication: CARDIAC DISORDER
  8. TERBUTALINE SULFATE [Concomitant]
     Indication: ASTHMA
     Dosage: Ongoing

REACTIONS (1)
  - Deep vein thrombosis [Recovering/Resolving]
